FAERS Safety Report 9990295 (Version 3)
Quarter: 2014Q2

REPORT INFORMATION
  Report Type: Spontaneous
  Country: US (occurrence: US)
  Receive Date: 20140310
  Receipt Date: 20140417
  Transmission Date: 20141212
  Serious: No
  Sender: FDA-Public Use
  Company Number: US-009507513-1403USA003696

PATIENT
  Age: 89 Year
  Sex: Female
  Weight: 52.15 kg

DRUGS (2)
  1. OXYTROL FOR WOMEN [Suspect]
     Indication: INCONTINENCE
     Dosage: 1 DF, Q4D
     Route: 062
     Dates: start: 20140218, end: 20140221
  2. OXYTROL FOR WOMEN [Suspect]
     Indication: HYPERTONIC BLADDER

REACTIONS (3)
  - Rash erythematous [Recovering/Resolving]
  - Application site erythema [Recovering/Resolving]
  - Drug ineffective [Unknown]
